FAERS Safety Report 4962007-5 (Version None)
Quarter: 2006Q2

REPORT INFORMATION
  Report Type: 
  Country: None (occurrence: None)
  Receive Date: 20060404
  Receipt Date: 20051207
  Transmission Date: 20061013
  Serious: Yes (Hospitalization)
  Sender: FDA-Public Use
  Company Number: US-MERCK-0512USA01355

PATIENT
  Age: 62 Year
  Sex: Male
  Weight: 74 kg

DRUGS (8)
  1. VIOXX [Suspect]
     Indication: ARTHRITIS
     Route: 048
     Dates: start: 20000601, end: 20010801
  2. GLUCOPHAGE [Concomitant]
     Route: 048
  3. LIPITOR [Concomitant]
     Route: 048
  4. LANOXIN [Concomitant]
     Route: 065
  5. METOPROLOL [Concomitant]
     Route: 048
  6. ASPIRIN [Concomitant]
     Route: 048
  7. VITAMINS (UNSPECIFIED) [Concomitant]
     Route: 065
  8. FLEXERIL [Concomitant]
     Route: 048

REACTIONS (5)
  - ACUTE MYOCARDIAL INFARCTION [None]
  - CORONARY ARTERY DISEASE [None]
  - DIVERTICULUM [None]
  - SPINAL CORD INJURY [None]
  - VENTRICULAR DYSFUNCTION [None]
